FAERS Safety Report 24398230 (Version 1)
Quarter: 2024Q4

REPORT INFORMATION
  Report Type: Spontaneous
  Country: US (occurrence: US)
  Receive Date: 20241004
  Receipt Date: 20241004
  Transmission Date: 20250114
  Serious: No
  Sender: BIOGEN
  Company Number: US-BIOGEN-2024BI01273683

PATIENT
  Sex: Male

DRUGS (1)
  1. SKYCLARYS [Suspect]
     Active Substance: OMAVELOXOLONE
     Indication: Cerebellar ataxia
     Route: 050
     Dates: start: 20240502

REACTIONS (8)
  - Cough [Unknown]
  - Nasal congestion [Unknown]
  - Pyrexia [Unknown]
  - Myalgia [Unknown]
  - Off label use [Unknown]
  - COVID-19 [Unknown]
  - Fatigue [Unknown]
  - Influenza [Unknown]

NARRATIVE: CASE EVENT DATE: 20240101
